FAERS Safety Report 18968262 (Version 1)
Quarter: 2021Q1

REPORT INFORMATION
  Report Type: Spontaneous
  Country: FR (occurrence: FR)
  Receive Date: 20210304
  Receipt Date: 20210304
  Transmission Date: 20210420
  Serious: Yes (Other)
  Sender: FDA-Public Use
  Company Number: NVSC2021FR043568

PATIENT
  Sex: Male

DRUGS (9)
  1. PROPOFOL. [Suspect]
     Active Substance: PROPOFOL
     Indication: PRODUCT USED FOR UNKNOWN INDICATION
     Dosage: UNK (LAST DOSE:01?DEC?2020)
     Route: 065
     Dates: start: 20201021
  2. CALCIPARINE [Suspect]
     Active Substance: HEPARIN CALCIUM
     Indication: CARDIOVASCULAR EVENT PROPHYLAXIS
     Dosage: UNK
     Route: 065
     Dates: start: 20201116, end: 20201216
  3. FUROSEMIDE. [Suspect]
     Active Substance: FUROSEMIDE
     Indication: PRODUCT USED FOR UNKNOWN INDICATION
     Dosage: UNK (LAST DOSE:12?DEC?2020)
     Route: 065
     Dates: start: 20201202
  4. SUFENTANIL [Suspect]
     Active Substance: SUFENTANIL
     Indication: PRODUCT USED FOR UNKNOWN INDICATION
     Dosage: UNK (LAST DOSE: 01?DEC?2020)
     Route: 065
     Dates: start: 20201021
  5. IODINE. [Suspect]
     Active Substance: IODINE
     Indication: PRODUCT USED FOR UNKNOWN INDICATION
     Dosage: UNK
     Route: 065
  6. MEROPENEM. [Suspect]
     Active Substance: MEROPENEM
     Indication: INFECTION
     Dosage: 0.25 DF (0.25 H, QH)
     Route: 065
     Dates: start: 20201123, end: 20201214
  7. PIPERACILLIN. [Suspect]
     Active Substance: PIPERACILLIN SODIUM
     Indication: PRODUCT USED FOR UNKNOWN INDICATION
     Dosage: UNK (LAST DOSE: 29?NOV?2020)
     Route: 065
     Dates: start: 20201123
  8. MORPHINE SULFATE. [Suspect]
     Active Substance: MORPHINE SULFATE
     Indication: PRODUCT USED FOR UNKNOWN INDICATION
     Dosage: UNK (LAST DOSE: 10?DEC?2020)
     Route: 065
     Dates: start: 20201118
  9. NORADRENALINE [Suspect]
     Active Substance: NOREPINEPHRINE
     Indication: PRODUCT USED FOR UNKNOWN INDICATION
     Dosage: UNK (LAST DOSE: 13?DEC?2020)
     Route: 065
     Dates: start: 20201117

REACTIONS (4)
  - Hyperleukocytosis [Recovering/Resolving]
  - Rash maculo-papular [Recovering/Resolving]
  - Haematoma [Unknown]
  - Eosinophilia [Recovering/Resolving]

NARRATIVE: CASE EVENT DATE: 20201127
